FAERS Safety Report 11497448 (Version 2)
Quarter: 2016Q2

REPORT INFORMATION
  Report Type: Spontaneous
  Country: US (occurrence: US)
  Receive Date: 20150911
  Receipt Date: 20160425
  Transmission Date: 20160815
  Serious: No
  Sender: FDA-Public Use
  Company Number: ADR-2015-01473

PATIENT
  Age: 20 Year
  Sex: Male

DRUGS (10)
  1. ZOFRAN [Suspect]
     Active Substance: ONDANSETRON HYDROCHLORIDE
  2. PROBINUL [Suspect]
     Active Substance: PROBIOTICS NOS
  3. DECADRON [Suspect]
     Active Substance: DEXAMETHASONE
  4. LIORESAL [Suspect]
     Active Substance: BACLOFEN
     Dosage: 553.3 MCG/DAY
     Route: 037
  5. SUBLIMAZE [Suspect]
     Active Substance: FENTANYL CITRATE
  6. VERSED [Suspect]
     Active Substance: MIDAZOLAM HYDROCHLORIDE
  7. CLEOCIN [Suspect]
     Active Substance: CLINDAMYCIN PHOSPHATE
  8. XYLOCAINE [Suspect]
     Active Substance: LIDOCAINE HYDROCHLORIDE
  9. PRECEDEX [Suspect]
     Active Substance: DEXMEDETOMIDINE HYDROCHLORIDE
  10. DIPRIVAN [Suspect]
     Active Substance: PROPOFOL

REACTIONS (3)
  - Fall [Recovered/Resolved]
  - Agitation [Recovered/Resolved]
  - Device alarm issue [None]
